FAERS Safety Report 8325619-7 (Version None)
Quarter: 2012Q2

REPORT INFORMATION
  Report Type: 
  Country: None (occurrence: None)
  Receive Date: 20120501
  Receipt Date: 20120423
  Transmission Date: 20120825
  Serious: Yes (Hospitalization, Other)
  Sender: FDA-Public Use
  Company Number: US-ASTRAZENECA-2010SE36882

PATIENT
  Age: 78 Year
  Sex: Female

DRUGS (9)
  1. TRIAMTERENE AND HYDROCHLOROTHIAZIDE [Concomitant]
     Dosage: 37.5-25 MG DAILY
  2. VICODIN ES [Concomitant]
     Dosage: 7.5-750 MG AS REQUIRED
  3. NEXIUM [Suspect]
     Route: 048
  4. AMLODIPINE BESYLATE [Concomitant]
  5. ASPIRIN [Concomitant]
  6. MEPROBAMATE [Concomitant]
  7. SIMVASTATIN [Concomitant]
  8. ATENOLOL [Concomitant]
  9. CLONIDINE HCL [Concomitant]

REACTIONS (24)
  - INFLUENZA [None]
  - ESSENTIAL HYPERTENSION [None]
  - HEADACHE [None]
  - RIB FRACTURE [None]
  - DRUG DOSE OMISSION [None]
  - ROAD TRAFFIC ACCIDENT [None]
  - PAIN [None]
  - COUGH [None]
  - CENTRAL NERVOUS SYSTEM INFLAMMATION [None]
  - CORONARY ARTERY DISEASE [None]
  - DECREASED APPETITE [None]
  - DYSPHAGIA [None]
  - BACK PAIN [None]
  - COSTOCHONDRITIS [None]
  - VOMITING [None]
  - NASAL CONGESTION [None]
  - NECK PAIN [None]
  - CHRONIC OBSTRUCTIVE PULMONARY DISEASE [None]
  - MALAISE [None]
  - SPINAL FRACTURE [None]
  - CHEST PAIN [None]
  - NEURITIS [None]
  - SPINAL DISORDER [None]
  - MUSCLE SPASMS [None]
